FAERS Safety Report 8053999-9 (Version None)
Quarter: 2012Q1

REPORT INFORMATION
  Report Type: 
  Country: None (occurrence: None)
  Receive Date: 20120118
  Receipt Date: 20120111
  Transmission Date: 20120608
  Serious: Yes (Hospitalization)
  Sender: FDA-Public Use
  Company Number: US-US-EMD SERONO, INC.-7009126

PATIENT
  Sex: Female
  Weight: 118 kg

DRUGS (21)
  1. PRISTIQ [Concomitant]
     Route: 048
     Dates: start: 20100612
  2. CYCLOBENZAPRINE [Concomitant]
     Indication: MUSCLE SPASMS
     Route: 048
     Dates: start: 20100612
  3. MECLIZINE [Concomitant]
     Indication: DIZZINESS
     Route: 048
     Dates: start: 20090926
  4. VITAMIN D [Concomitant]
     Route: 048
     Dates: start: 20090924
  5. COUMADIN [Concomitant]
     Indication: DEEP VEIN THROMBOSIS
     Route: 048
     Dates: start: 20091016
  6. AMITRIPTYLINE HCL [Concomitant]
     Route: 048
     Dates: start: 20081217
  7. LYRICA [Concomitant]
     Route: 048
     Dates: start: 20100817
  8. AMBIEN [Concomitant]
     Indication: INSOMNIA
     Route: 048
     Dates: start: 20090623
  9. IMITREX [Concomitant]
     Indication: MIGRAINE
     Route: 048
     Dates: start: 20090623
  10. TIZANIDINE HCL [Concomitant]
     Indication: MUSCLE SPASTICITY
  11. PERCOCET [Concomitant]
     Indication: PAIN
     Route: 048
  12. NUVARING [Concomitant]
     Route: 067
     Dates: start: 20090629
  13. REBIF [Suspect]
     Indication: MULTIPLE SCLEROSIS
     Route: 058
     Dates: start: 20070211, end: 20090601
  14. REBIF [Suspect]
     Route: 058
     Dates: start: 20090601, end: 20090901
  15. ABILIFY [Concomitant]
     Route: 048
     Dates: start: 20090607
  16. METOPROLOL [Concomitant]
     Route: 048
     Dates: start: 20091016
  17. XANAX [Concomitant]
     Indication: ANXIETY
     Route: 048
     Dates: start: 20090926
  18. REBIF [Suspect]
     Route: 058
     Dates: start: 20091001
  19. BACLOFEN [Concomitant]
     Route: 048
     Dates: start: 20100804
  20. LEVOTHROID [Concomitant]
     Route: 048
     Dates: start: 20090623
  21. MULTI-VITAMIN [Concomitant]
     Route: 048
     Dates: start: 20090701

REACTIONS (4)
  - RENAL FAILURE ACUTE [None]
  - PNEUMONIA ASPIRATION [None]
  - MUSCLE TWITCHING [None]
  - CONFUSIONAL STATE [None]
